FAERS Safety Report 7879755-X (Version None)
Quarter: 2011Q4

REPORT INFORMATION
  Report Type: 
  Country: None (occurrence: None)
  Receive Date: 20111101
  Receipt Date: 20111017
  Transmission Date: 20120403
  Serious: Yes (Hospitalization)
  Sender: FDA-Public Use
  Company Number: JP-ELI_LILLY_AND_COMPANY-JP201109001550

PATIENT
  Sex: Female
  Weight: 54 kg

DRUGS (5)
  1. BYETTA [Suspect]
     Indication: TYPE 2 DIABETES MELLITUS
     Dosage: 5 UG, BID
     Route: 058
     Dates: start: 20110708, end: 20110805
  2. PAXIL [Concomitant]
     Indication: DEPRESSIVE SYMPTOM
     Dosage: 10 MG, UNK
     Route: 048
     Dates: start: 20110624, end: 20110808
  3. PRAVASTATIN SODIUM [Concomitant]
     Dosage: 10 MG, UNK
     Route: 048
     Dates: start: 20090301
  4. METFORMIN HCL [Concomitant]
     Indication: TYPE 2 DIABETES MELLITUS
     Dosage: 750 MG, UNK
     Route: 048
     Dates: start: 20070301
  5. OLMESARTAN MEDOXOMIL [Concomitant]
     Dosage: 20 MG, UNK
     Route: 048
     Dates: start: 20100401

REACTIONS (3)
  - DECREASED APPETITE [None]
  - WEIGHT DECREASED [None]
  - DEPRESSIVE SYMPTOM [None]
